FAERS Safety Report 8764105 (Version 1)
Quarter: 2012Q4

REPORT INFORMATION
  Report Type: 
  Country: IT (occurrence: IT)
  Receive Date: 20120830
  Receipt Date: 20120830
  Transmission Date: 20130627
  Serious: Yes (Hospitalization)
  Sender: FDA-Public Use
  Company Number: IT-BAYER-2012-089791

PATIENT
  Age: 28 Year
  Sex: Female

DRUGS (2)
  1. CIPROXIN 500 MG FILM-COATED TABLETS [Suspect]
     Dosage: 3 g, ONCE
     Route: 048
     Dates: start: 20120727, end: 20120727
  2. MAG 2 [Suspect]
     Dosage: UNK
     Dates: start: 20120727, end: 20120727

REACTIONS (3)
  - No adverse event [Recovering/Resolving]
  - Drug administration error [None]
  - Overdose [None]
